FAERS Safety Report 9642274 (Version 1)
Quarter: 2013Q4

REPORT INFORMATION
  Report Type: Spontaneous
  Country: CH (occurrence: CH)
  Receive Date: 20131024
  Receipt Date: 20131024
  Transmission Date: 20140711
  Serious: Yes (Hospitalization)
  Sender: FDA-Public Use
  Company Number: CH-BIOGENIDEC-2013BI101570

PATIENT
  Age: 70 Year
  Sex: Male

DRUGS (5)
  1. AVONEX [Suspect]
     Indication: MULTIPLE SCLEROSIS
     Route: 030
     Dates: start: 20011015
  2. METOPROLOL-MEPHA [Concomitant]
     Indication: HYPERTENSION
  3. CO-LISINOPRIL [Concomitant]
     Indication: HYPERTENSION
  4. CO-LISINOPRIL [Concomitant]
     Indication: FLUID RETENTION
  5. MEPHANOL [Concomitant]

REACTIONS (1)
  - Inguinal hernia [Recovered/Resolved]
